FAERS Safety Report 9564035 (Version 1)
Quarter: 2013Q3

REPORT INFORMATION
  Report Type: Spontaneous
  Country: US (occurrence: US)
  Receive Date: 20130928
  Receipt Date: 20130928
  Transmission Date: 20140515
  Serious: No
  Sender: FDA-Public Use
  Company Number: US-009507513-1309USA013050

PATIENT
  Sex: Female

DRUGS (4)
  1. CLARITIN LIQUIGELS [Suspect]
     Indication: HOUSE DUST ALLERGY
     Dosage: UNK
     Route: 048
  2. CLARITIN LIQUIGELS [Suspect]
     Indication: SNEEZING
  3. CLARITIN LIQUIGELS [Suspect]
     Indication: RHINORRHOEA
  4. CLARITIN LIQUIGELS [Suspect]
     Indication: HEADACHE

REACTIONS (1)
  - Condition aggravated [Recovered/Resolved]
